FAERS Safety Report 7033716-1 (Version None)
Quarter: 2010Q4

REPORT INFORMATION
  Report Type: 
  Country: None (occurrence: None)
  Receive Date: 20101007
  Receipt Date: 20100924
  Transmission Date: 20110411
  Serious: Yes (Hospitalization)
  Sender: FDA-Public Use
  Company Number: DE-MYLANLABS-2009S1000716

PATIENT
  Age: 67 Year
  Sex: Female

DRUGS (6)
  1. FUROSEMIDE [Suspect]
     Indication: OEDEMA
     Route: 048
     Dates: end: 20081008
  2. MADOPAR LT [Suspect]
     Indication: PARKINSON'S DISEASE
     Route: 048
  3. RISPERDAL [Suspect]
     Indication: SCHIZOPHRENIA
     Route: 048
     Dates: end: 20081014
  4. NITRAZEPAM [Suspect]
     Indication: SLEEP DISORDER
     Route: 048
  5. SPIRONOLACTONE [Concomitant]
     Indication: OEDEMA
     Route: 048
  6. AKINETON /00079501/ [Concomitant]
     Indication: PARKINSON'S DISEASE

REACTIONS (2)
  - HYPOKALAEMIA [None]
  - SYNCOPE [None]
